FAERS Safety Report 5415702-8 (Version None)
Quarter: 2007Q3

REPORT INFORMATION
  Report Type: 
  Country: None (occurrence: None)
  Receive Date: 20070815
  Receipt Date: 20070802
  Transmission Date: 20080115
  Serious: Yes (Hospitalization)
  Sender: FDA-Public Use
  Company Number: US-PFIZER INC-2007048517

PATIENT
  Age: 56 Year
  Sex: Male
  Weight: 81.6 kg

DRUGS (3)
  1. PREGABALIN [Suspect]
     Indication: NEUROPATHY PERIPHERAL
  2. CARBAMAZEPINE [Concomitant]
  3. AMITRIPTYLINE HCL [Concomitant]

REACTIONS (4)
  - COORDINATION ABNORMAL [None]
  - DYSARTHRIA [None]
  - FALL [None]
  - MENTAL STATUS CHANGES [None]
